FAERS Safety Report 9902187 (Version 2)
Quarter: 2014Q1

REPORT INFORMATION
  Report Type: Report from Study
  Country: US (occurrence: US)
  Receive Date: 20140217
  Receipt Date: 20140310
  Transmission Date: 20141002
  Serious: Yes (Hospitalization)
  Sender: FDA-Public Use
  Company Number: US-JNJFOC-20140206967

PATIENT
  Age: 12 Year
  Sex: Female
  Weight: 70.8 kg

DRUGS (8)
  1. REMICADE [Suspect]
     Indication: CROHN^S DISEASE
     Route: 042
     Dates: start: 20080627
  2. NEXIUM [Concomitant]
     Route: 065
  3. MIDODRINE [Concomitant]
     Route: 065
  4. ZOFRAN [Concomitant]
     Route: 065
  5. PHENERGAN [Concomitant]
     Route: 065
  6. PROAIR HFA [Concomitant]
     Route: 065
  7. SINGULAIR [Concomitant]
     Route: 065
  8. CARAFATE [Concomitant]
     Route: 065

REACTIONS (2)
  - Weight decreased [Recovered/Resolved]
  - Dehydration [Recovered/Resolved]
